FAERS Safety Report 17721316 (Version 1)
Quarter: 2020Q2

REPORT INFORMATION
  Report Type: Spontaneous
  Country: US (occurrence: US)
  Receive Date: 20200429
  Receipt Date: 20200429
  Transmission Date: 20200714
  Serious: Yes (Other)
  Sender: FDA-Public Use
  Company Number: US-ROCHE-2459156

PATIENT
  Age: 76 Year
  Sex: Male
  Weight: 86.26 kg

DRUGS (2)
  1. AVASTIN [Suspect]
     Active Substance: BEVACIZUMAB
     Indication: NEOVASCULAR AGE-RELATED MACULAR DEGENERATION
     Dosage: 2.5 MG/0.1 ML; INJECTIONS ONE EVERY 6-7 WEEKS; ONGOING: NO
     Route: 065
     Dates: start: 2015
  2. PRESERVISION [Concomitant]
     Active Substance: MINERALS\VITAMINS

REACTIONS (4)
  - Blindness unilateral [Recovering/Resolving]
  - Off label use [Unknown]
  - Endophthalmitis [Recovered/Resolved]
  - Intentional product use issue [Unknown]

NARRATIVE: CASE EVENT DATE: 2015
